FAERS Safety Report 23539954 (Version 1)
Quarter: 2024Q1

REPORT INFORMATION
  Report Type: Spontaneous
  Country: FR (occurrence: None)
  Receive Date: 20240219
  Receipt Date: 20240219
  Transmission Date: 20240409
  Serious: Yes (Death, Other)
  Sender: FDA-Public Use
  Company Number: 2023A281310

PATIENT
  Age: 12 Day
  Sex: Female
  Weight: 2.6 kg

DRUGS (1)
  1. BEYFORTUS [Suspect]
     Active Substance: NIRSEVIMAB-ALIP
     Indication: Respiratory syncytial virus immunisation
     Dosage: UNK
     Route: 030
     Dates: start: 20231123, end: 20231123

REACTIONS (1)
  - Sudden infant death syndrome [Fatal]

NARRATIVE: CASE EVENT DATE: 20231203
